FAERS Safety Report 5463968-0 (Version None)
Quarter: 2007Q3

REPORT INFORMATION
  Report Type: 
  Country: None (occurrence: None)
  Receive Date: 20070921
  Receipt Date: 20070912
  Transmission Date: 20080115
  Serious: Yes (Other)
  Sender: FDA-Public Use
  Company Number: PHBS2007JP01875

PATIENT
  Age: 48 Year
  Sex: Male
  Weight: 81 kg

DRUGS (3)
  1. DIOVAN [Suspect]
     Indication: HYPERTENSION
     Dosage: 80 MG/DAY
     Route: 048
     Dates: start: 20011101, end: 20070130
  2. PEGASYS [Suspect]
     Indication: HEPATITIS C
     Dosage: UNK, UNK
     Route: 058
     Dates: start: 20040712, end: 20061020
  3. MICARDIS [Concomitant]
     Indication: HYPERTENSION
     Dosage: 40MG
     Route: 048
     Dates: start: 20070202

REACTIONS (7)
  - BLOOD GLUCOSE INCREASED [None]
  - BLOOD LACTATE DEHYDROGENASE INCREASED [None]
  - CELL MARKER INCREASED [None]
  - HAEMOGLOBIN DECREASED [None]
  - INTERSTITIAL LUNG DISEASE [None]
  - PLATELET COUNT DECREASED [None]
  - WHITE BLOOD CELL COUNT DECREASED [None]
